FAERS Safety Report 7934467-9 (Version None)
Quarter: 2011Q4

REPORT INFORMATION
  Report Type: 
  Country: None (occurrence: None)
  Receive Date: 20111122
  Receipt Date: 20111115
  Transmission Date: 20120403
  Serious: Yes (Hospitalization)
  Sender: FDA-Public Use
  Company Number: FR-GLAXOSMITHKLINE-B0755078A

PATIENT
  Sex: Female
  Weight: 63 kg

DRUGS (5)
  1. ALUMINUM HYDROXIDE AND MAGNESIUM TRISILICATE [Concomitant]
     Indication: DIARRHOEA
     Route: 048
  2. ARIXTRA [Suspect]
     Indication: PRODUCT USED FOR UNKNOWN INDICATION
     Dosage: 7.5MG PER DAY
     Route: 058
     Dates: start: 20110623, end: 20110701
  3. CANDESARTAN CILEXETIL [Concomitant]
     Indication: HYPERTENSION
     Dosage: 4MG PER DAY
     Route: 048
  4. RABEPRAZOLE SODIUM [Concomitant]
     Indication: GASTRIC ULCER
     Dosage: 20MG PER DAY
     Route: 048
  5. LEXOMIL [Concomitant]
     Indication: ANXIETY
     Dosage: 1TAB PER DAY
     Route: 048

REACTIONS (4)
  - OVERDOSE [None]
  - OFF LABEL USE [None]
  - IMPLANT SITE HAEMORRHAGE [None]
  - ANAEMIA [None]
